FAERS Safety Report 21281438 (Version 1)
Quarter: 2022Q3

REPORT INFORMATION
  Report Type: Spontaneous
  Country: US (occurrence: US)
  Receive Date: 20220901
  Receipt Date: 20220901
  Transmission Date: 20221027
  Serious: No
  Sender: FDA-Public Use
  Company Number: US-ALLERGAN-2213007US

PATIENT
  Age: 18 Year
  Sex: Male
  Weight: 107.94 kg

DRUGS (7)
  1. SAPHRIS [Suspect]
     Active Substance: ASENAPINE MALEATE
     Indication: Developmental delay
     Dosage: 10 MG (1/2 IN THE MORNING AND 1/2 IN THE EVENING)
     Route: 060
     Dates: start: 20220405, end: 20220416
  2. SEROQUEL [Concomitant]
     Active Substance: QUETIAPINE FUMARATE
     Indication: Developmental delay
     Dosage: UNK
     Dates: start: 202108
  3. ZYPREXA [Concomitant]
     Active Substance: OLANZAPINE
     Indication: Developmental delay
     Dosage: UNK
     Dates: start: 202108
  4. KLONOPIN [Concomitant]
     Active Substance: CLONAZEPAM
     Indication: Sleep disorder
  5. ADZENYS ER [Concomitant]
     Active Substance: AMPHETAMINE
     Indication: Attention deficit hyperactivity disorder
  6. VITAMIN D3 [Concomitant]
     Active Substance: CHOLECALCIFEROL
     Indication: Vitamin D deficiency
  7. PRILOSEC [Concomitant]
     Active Substance: OMEPRAZOLE MAGNESIUM
     Indication: Nausea

REACTIONS (11)
  - Abnormal behaviour [Recovered/Resolved]
  - Impulsive behaviour [Recovering/Resolving]
  - Aggression [Recovering/Resolving]
  - Retching [Recovering/Resolving]
  - Off label use [Unknown]
  - Wrong technique in product usage process [Unknown]
  - Incorrect route of product administration [Unknown]
  - Vomiting [Recovered/Resolved]
  - Anxiety [Recovering/Resolving]
  - Agitation [Recovering/Resolving]
  - Anger [Recovering/Resolving]

NARRATIVE: CASE EVENT DATE: 20220401
